FAERS Safety Report 14284717 (Version 1)
Quarter: 2017Q4

REPORT INFORMATION
  Report Type: Spontaneous
  Country: US (occurrence: US)
  Receive Date: 20171214
  Receipt Date: 20171214
  Transmission Date: 20180321
  Serious: Yes (Other)
  Sender: FDA-Public Use
  Company Number: US-BRISTOL-MYERS SQUIBB COMPANY-BMS-2017-112924

PATIENT
  Age: 21 Year
  Sex: Male

DRUGS (1)
  1. NIVOLUMAB [Suspect]
     Active Substance: NIVOLUMAB
     Indication: B-CELL LYMPHOMA
     Dosage: 240 MG, Q2WK
     Route: 065
     Dates: start: 201607

REACTIONS (1)
  - Pneumonitis [Unknown]
